FAERS Safety Report 9771450 (Version 2)
Quarter: 2013Q4

REPORT INFORMATION
  Report Type: Report from Study
  Country: US (occurrence: US)
  Receive Date: 20131219
  Receipt Date: 20131219
  Transmission Date: 20140711
  Serious: Yes (Hospitalization, Other)
  Sender: FDA-Public Use
  Company Number: US-PFIZER INC-2013346087

PATIENT
  Age: 71 Year
  Sex: Female

DRUGS (18)
  1. TEMSIROLIMUS [Suspect]
     Indication: NON-SMALL CELL LUNG CANCER
     Dosage: 8 MG, WEEKLY
     Route: 042
     Dates: start: 20130701, end: 20130708
  2. TEMSIROLIMUS [Suspect]
     Dosage: 8 MG, WEEKLY
     Route: 042
     Dates: start: 20130722, end: 20130729
  3. NERATINIB [Suspect]
     Indication: NON-SMALL CELL LUNG CANCER
     Dosage: 240 MG, DAILY
     Route: 048
     Dates: start: 20130701, end: 20130714
  4. NERATINIB [Suspect]
     Dosage: 240 MG, DAILY
     Route: 048
     Dates: start: 20130722, end: 20130731
  5. AZELASTINE HYDROCHLORIDE [Concomitant]
     Dosage: UNK
     Dates: start: 2008
  6. DIGOXIN [Concomitant]
     Dosage: UNK
     Dates: start: 2008
  7. DILTIAZEM CD [Concomitant]
     Dosage: UNK
     Dates: start: 2008
  8. LOMOTIL [Concomitant]
     Indication: DIARRHOEA
     Dosage: 2.5/0.025 MG ORAL EVERY 6-8 HRS PRN
     Route: 048
     Dates: start: 20130709
  9. FAMOTIDINE [Concomitant]
     Dosage: UNK
     Dates: start: 201211
  10. METOPROLOL TARTRATE [Concomitant]
     Dosage: UNK
     Dates: start: 201211
  11. MONTELUKAST SODIUM [Concomitant]
     Dosage: UNK
     Dates: start: 2009
  12. SERTRALINE HYDROCHLORIDE [Concomitant]
     Dosage: UNK
     Dates: start: 2003
  13. SPIRONOLACTONE [Concomitant]
     Dosage: UNK
     Dates: start: 1993
  14. XARELTO [Concomitant]
     Dosage: UNK
  15. FUROSEMIDE [Concomitant]
     Dosage: UNK
     Dates: start: 1993
  16. LOPERAMIDE HYDROCHLORIDE [Concomitant]
     Indication: PROPHYLAXIS AGAINST DIARRHOEA
     Dosage: 2 MG, AS NEEDED
     Route: 048
     Dates: start: 20130701
  17. CIPROFLOXACIN [Concomitant]
     Dosage: UNK
     Dates: start: 20130708, end: 20130715
  18. PROCHLORPERAZINE [Concomitant]
     Dosage: UNK
     Dates: start: 20130712

REACTIONS (1)
  - Dehydration [Recovered/Resolved]
